FAERS Safety Report 10808300 (Version 1)
Quarter: 2015Q1

REPORT INFORMATION
  Report Type: Report from Study
  Country: US (occurrence: US)
  Receive Date: 20150217
  Receipt Date: 20150217
  Transmission Date: 20150721
  Serious: No
  Sender: FDA-Public Use
  Company Number: US-ABBVIE-14K-163-1213909-00

PATIENT
  Age: 30 Year
  Sex: Male

DRUGS (5)
  1. HUMIRA [Suspect]
     Active Substance: ADALIMUMAB
     Dates: start: 20140214
  2. HUMIRA [Suspect]
     Active Substance: ADALIMUMAB
     Indication: CROHN^S DISEASE
     Dates: start: 20130601, end: 20130601
  3. HUMIRA [Suspect]
     Active Substance: ADALIMUMAB
     Dates: start: 20130629, end: 20140214
  4. UNKNOWN MEDICATIONS [Concomitant]
     Active Substance: UNSPECIFIED INGREDIENT
     Indication: PRODUCT USED FOR UNKNOWN INDICATION
  5. HUMIRA [Suspect]
     Active Substance: ADALIMUMAB
     Dates: start: 20130615, end: 20130615

REACTIONS (2)
  - Injection site pain [Not Recovered/Not Resolved]
  - Crohn^s disease [Unknown]

NARRATIVE: CASE EVENT DATE: 20130601
